FAERS Safety Report 18674841 (Version 2)
Quarter: 2021Q1

REPORT INFORMATION
  Report Type: Spontaneous
  Country: JP (occurrence: JP)
  Receive Date: 20201229
  Receipt Date: 20210205
  Transmission Date: 20210419
  Serious: Yes (Other)
  Sender: FDA-Public Use
  Company Number: NVSJ2020JP010077

PATIENT
  Age: 76 Year
  Sex: Male

DRUGS (3)
  1. AFLIBERCEPT [Suspect]
     Active Substance: AFLIBERCEPT
     Indication: POLYPOIDAL CHOROIDAL VASCULOPATHY
     Dosage: 84 TIMES
     Route: 031
  2. BEOVU [Suspect]
     Active Substance: BROLUCIZUMAB-DBLL
     Indication: POLYPOIDAL CHOROIDAL VASCULOPATHY
     Dosage: 6 MG
     Route: 031
     Dates: start: 20200903, end: 20200903
  3. BEOVU [Suspect]
     Active Substance: BROLUCIZUMAB-DBLL
     Dosage: 6 MG
     Route: 031
     Dates: start: 20201001, end: 20201001

REACTIONS (9)
  - Uveitis [Recovering/Resolving]
  - Vitreous opacities [Recovering/Resolving]
  - Keratic precipitates [Recovering/Resolving]
  - Vision blurred [Unknown]
  - Anterior chamber inflammation [Recovering/Resolving]
  - Anterior chamber cell [Recovered/Resolved]
  - Cataract [Unknown]
  - Product use in unapproved indication [Unknown]
  - Blindness [Recovering/Resolving]

NARRATIVE: CASE EVENT DATE: 20201008
